FAERS Safety Report 5733847-X (Version None)
Quarter: 2008Q2

REPORT INFORMATION
  Report Type: 
  Country: None (occurrence: None)
  Receive Date: 20080509
  Receipt Date: 20080505
  Transmission Date: 20081010
  Serious: Yes (Death, Hospitalization, Other)
  Sender: FDA-Public Use
  Company Number: BR-ABBOTT-08P-020-0439072-00

PATIENT
  Sex: Male
  Weight: 78 kg

DRUGS (7)
  1. HUMIRA [Suspect]
     Indication: RHEUMATOID ARTHRITIS
     Route: 058
     Dates: start: 20080114, end: 20080211
  2. SEDILAX (SEDILAX) [Interacting]
     Indication: ARTHRALGIA
  3. SEDILAX (SEDILAX) [Interacting]
  4. OMEPRAZOLE [Concomitant]
     Indication: PROPHYLAXIS AGAINST GASTROINTESTINAL ULCER
  5. CALCIUM WITH VITAMIN D [Concomitant]
     Indication: RHEUMATOID ARTHRITIS
  6. PREDNISONE TAB [Concomitant]
     Indication: RHEUMATOID ARTHRITIS
  7. UNSPECIFIED MEDICATIONS [Concomitant]
     Indication: DRUG USE FOR UNKNOWN INDICATION

REACTIONS (15)
  - ABDOMINAL PAIN UPPER [None]
  - ARTHRITIS [None]
  - DRUG INTERACTION [None]
  - EATING DISORDER [None]
  - GASTRIC HAEMORRHAGE [None]
  - JOINT SPRAIN [None]
  - KIDNEY INFECTION [None]
  - LUNG INFECTION [None]
  - OEDEMA PERIPHERAL [None]
  - ORAL INTAKE REDUCED [None]
  - PAIN [None]
  - PYURIA [None]
  - SEPSIS [None]
  - URINARY RETENTION [None]
  - VOMITING [None]
